FAERS Safety Report 21218028 (Version 1)
Quarter: 2022Q3

REPORT INFORMATION
  Report Type: Spontaneous
  Country: FR (occurrence: FR)
  Receive Date: 20220816
  Receipt Date: 20220816
  Transmission Date: 20221027
  Serious: Yes (Other)
  Sender: FDA-Public Use
  Company Number: None

PATIENT
  Age: 40 Year
  Sex: Female
  Weight: 108 kg

DRUGS (3)
  1. CEFTAZIDIME [Suspect]
     Active Substance: CEFTAZIDIME
     Indication: Stenotrophomonas infection
     Dosage: 1 DF
     Dates: start: 20220619, end: 20220621
  2. MEROPENEM [Suspect]
     Active Substance: MEROPENEM
     Indication: Stenotrophomonas infection
     Dosage: 1 DF
     Dates: start: 20220616, end: 20220617
  3. SULFAMETHOXAZOLE [Suspect]
     Active Substance: SULFAMETHOXAZOLE
     Indication: Stenotrophomonas infection
     Dosage: 1 DF
     Dates: start: 20220617, end: 20220619

REACTIONS (1)
  - Urticaria [Recovering/Resolving]

NARRATIVE: CASE EVENT DATE: 20220601
